FAERS Safety Report 5724878-4 (Version None)
Quarter: 2008Q2

REPORT INFORMATION
  Report Type: 
  Country: None (occurrence: None)
  Receive Date: 20080501
  Receipt Date: 20080416
  Transmission Date: 20081010
  Serious: Yes (Other)
  Sender: FDA-Public Use
  Company Number: GB-AMGEN-UK274899

PATIENT
  Sex: Male

DRUGS (1)
  1. KINERET [Suspect]

REACTIONS (1)
  - SQUAMOUS CELL CARCINOMA [None]
